FAERS Safety Report 9056657 (Version 1)
Quarter: 2013Q1

REPORT INFORMATION
  Report Type: Spontaneous
  Country: GB (occurrence: GB)
  Receive Date: 20130204
  Receipt Date: 20130204
  Transmission Date: 20140127
  Serious: Yes (Hospitalization)
  Sender: FDA-Public Use
  Company Number: PHHY2013GB007979

PATIENT
  Age: 32 Year
  Sex: Male

DRUGS (3)
  1. CARBAMAZEPINE [Suspect]
     Dosage: 631 MG/KG, UNK
  2. CLONAZEPAM [Suspect]
     Dosage: 3.5 MG, UNK
  3. CHLORPROMAZINE [Suspect]
     Dosage: 300 MG, UNK

REACTIONS (9)
  - Acute respiratory distress syndrome [Not Recovered/Not Resolved]
  - Respiratory failure [Not Recovered/Not Resolved]
  - Respiratory depression [Not Recovered/Not Resolved]
  - Depressed level of consciousness [Unknown]
  - Agitation [Not Recovered/Not Resolved]
  - Overdose [Not Recovered/Not Resolved]
  - C-reactive protein increased [Not Recovered/Not Resolved]
  - Blood creatinine decreased [Not Recovered/Not Resolved]
  - Drug level increased [Not Recovered/Not Resolved]
